FAERS Safety Report 8525265-6 (Version None)
Quarter: 2012Q3

REPORT INFORMATION
  Report Type: 
  Country: None (occurrence: None)
  Receive Date: 20120720
  Receipt Date: 20120717
  Transmission Date: 20120928
  Serious: Yes (Disabling)
  Sender: FDA-Public Use
  Company Number: PHHY2012CN048927

PATIENT
  Age: 11 Year
  Sex: Male

DRUGS (4)
  1. LAMOTRIGINE [Concomitant]
     Indication: EPILEPSY
  2. VALPROATE SODIUM [Concomitant]
     Indication: EPILEPSY
  3. TRILEPTAL [Suspect]
     Indication: EPILEPSY
     Route: 048
     Dates: start: 20111124
  4. TRILEPTAL [Suspect]
     Dosage: 0.45 G, BID
     Route: 048
     Dates: end: 20120529

REACTIONS (3)
  - TREMOR [None]
  - LEUKODYSTROPHY [None]
  - MYOCLONUS [None]
